FAERS Safety Report 5290260-X (Version None)
Quarter: 2007Q2

REPORT INFORMATION
  Report Type: 
  Country: None (occurrence: None)
  Receive Date: 20070406
  Receipt Date: 20070326
  Transmission Date: 20071010
  Serious: Yes (Hospitalization)
  Sender: FDA-Public Use
  Company Number: GB-PFIZER INC-2006147771

PATIENT
  Age: 68 Year
  Sex: Female
  Weight: 80 kg

DRUGS (11)
  1. GENOTROPIN [Suspect]
     Indication: GROWTH HORMONE DEFICIENCY
     Route: 058
     Dates: start: 20010209, end: 20061123
  2. FLUDROCORTISONE ACETATE [Concomitant]
     Dosage: DAILY DOSE:.05MG-FREQ:DAILY
     Route: 048
  3. HYDROCORTISONE [Concomitant]
     Dosage: FREQ:10/5/5 MG THREE TIMES DAILY
     Route: 048
  4. ATENOLOL [Concomitant]
     Dosage: DAILY DOSE:75MG-FREQ:DAILY
     Route: 048
  5. IMDUR [Concomitant]
     Dosage: DAILY DOSE:30MG-FREQ:DAILY
     Route: 048
  6. MESALAZINE [Concomitant]
     Route: 048
  7. ACETYLSALICYLIC ACID SRT [Concomitant]
     Dosage: DAILY DOSE:75MG-FREQ:DAILY
     Route: 048
  8. MORPHINE SULFATE [Concomitant]
     Route: 048
  9. CYCLIZINE [Concomitant]
     Route: 048
  10. LIPITOR [Concomitant]
     Dosage: DAILY DOSE:20MG-FREQ:DAILY
     Route: 048
  11. CITALOPRAM HYDROBROMIDE [Concomitant]
     Dosage: DAILY DOSE:10MG-FREQ:DAILY
     Route: 048

REACTIONS (1)
  - BREAST CANCER [None]
